FAERS Safety Report 4459668-6 (Version None)
Quarter: 2004Q3

REPORT INFORMATION
  Report Type: 
  Country: None (occurrence: None)
  Receive Date: 20040923
  Receipt Date: 20040923
  Transmission Date: 20050211
  Serious: Yes (Hospitalization)
  Sender: FDA-Public Use
  Company Number: None

PATIENT
  Sex: Male
  Weight: 91.5 kg

DRUGS (9)
  1. TAXOTERE [Suspect]
     Indication: PROSTATE CANCER METASTATIC
     Dosage: 16MG/M2  Q WEEKLY  INTRAVENOUS
     Route: 042
     Dates: start: 20040401, end: 20040826
  2. DEXAMETHASONE [Suspect]
     Indication: PROSTATE CANCER METASTATIC
     Dosage: 0.75 MG  B.I.D.  ORAL
     Route: 048
     Dates: start: 20040331, end: 20040920
  3. ALLOPURINOL [Concomitant]
  4. MULTI-VITAMIN [Concomitant]
  5. LOVENOX [Concomitant]
  6. SLIDING SCALE INSULIN [Concomitant]
  7. GLYBURIDE [Concomitant]
  8. PROTONIX [Concomitant]
  9. LASIX [Concomitant]

REACTIONS (2)
  - COMPRESSION FRACTURE [None]
  - MULTIPLE FRACTURES [None]
